FAERS Safety Report 8346396-X (Version None)
Quarter: 2012Q2

REPORT INFORMATION
  Report Type: 
  Country: None (occurrence: None)
  Receive Date: 20120507
  Receipt Date: 20120507
  Transmission Date: 20120825
  Serious: Yes (Death, Life-Threatening, Hospitalization)
  Sender: FDA-Public Use
  Company Number: None

PATIENT
  Sex: Female
  Weight: 57.5 kg

DRUGS (16)
  1. GALLIUM NITRATE 500 MG VIAL GENTA [Suspect]
     Indication: DIFFUSE LARGE B-CELL LYMPHOMA
     Dosage: 2,150 MG CONTINUOUS FOR 7 DAYS IV PUMP
     Route: 042
     Dates: start: 20120416, end: 20120423
  2. ENOXAPARIN [Concomitant]
  3. PANCRELIPASE [Concomitant]
  4. PSYLLIUM [Concomitant]
  5. SYNTHROID [Concomitant]
  6. ASPIRIN [Concomitant]
  7. CIPROFLOXACIN [Concomitant]
  8. HYOSCYAMINE [Concomitant]
  9. ALPRAMOLAM [Concomitant]
  10. ONDANSETRON [Concomitant]
  11. ACYCLOVIR [Concomitant]
  12. FLUCONAZOLE [Concomitant]
  13. NORCO [Concomitant]
  14. LORAZEPAM [Concomitant]
  15. OMEPRAZOLE [Concomitant]
  16. PROCHLORPERAZINE [Concomitant]

REACTIONS (8)
  - FATIGUE [None]
  - RESPIRATORY DISTRESS [None]
  - ASTHENIA [None]
  - PAIN [None]
  - LYMPHOMA [None]
  - DISEASE PROGRESSION [None]
  - RENAL FAILURE ACUTE [None]
  - ANXIETY [None]
